FAERS Safety Report 4798430-1 (Version None)
Quarter: 2005Q4

REPORT INFORMATION
  Report Type: 
  Country: None (occurrence: None)
  Receive Date: 20051014
  Receipt Date: 20050321
  Transmission Date: 20060501
  Serious: Yes (Death, Hospitalization, Other)
  Sender: FDA-Public Use
  Company Number: BE-BRISTOL-MYERS SQUIBB COMPANY-12904603

PATIENT
  Age: 71 Year
  Sex: Male
  Weight: 78 kg

DRUGS (10)
  1. CARBOPLATIN [Suspect]
     Indication: MESOTHELIOMA
     Dates: start: 20040322
  2. PEMETREXED DISODIUM [Suspect]
     Indication: MESOTHELIOMA
     Dates: start: 20040322
  3. BUMETANIDE [Concomitant]
     Indication: DIURETIC THERAPY
  4. CORDARONE [Concomitant]
     Indication: PROPHYLAXIS
  5. SINTROM [Concomitant]
     Indication: PROPHYLAXIS
  6. CAPOTEN [Concomitant]
     Indication: PROPHYLAXIS
  7. FRAXIPARINE [Concomitant]
     Indication: PROPHYLAXIS
  8. FOLIC ACID [Concomitant]
  9. VITAMIN B-12 [Concomitant]
     Dates: start: 20040315
  10. DEXAMETHASONE [Concomitant]

REACTIONS (7)
  - DEHYDRATION [None]
  - DIARRHOEA [None]
  - FEBRILE NEUTROPENIA [None]
  - RENAL FAILURE [None]
  - RENAL TUBULAR NECROSIS [None]
  - SEPSIS [None]
  - VOMITING [None]
